FAERS Safety Report 9221097 (Version 1)
Quarter: 2013Q2

REPORT INFORMATION
  Report Type: Spontaneous
  Country: GB (occurrence: GB)
  Receive Date: 20130409
  Receipt Date: 20130409
  Transmission Date: 20140414
  Serious: Yes (Hospitalization)
  Sender: FDA-Public Use
  Company Number: PHHY2013GB033177

PATIENT
  Age: 75 Year
  Sex: Female
  Weight: 81 kg

DRUGS (8)
  1. VENLAFAXINE [Suspect]
     Indication: DEPRESSION
     Dosage: 37.5 MG, QD (TAKEN AT NIGHT)
     Route: 048
     Dates: start: 20130211, end: 20130225
  2. VENLAFAXINE [Suspect]
     Dosage: 37.5 MG, BID
     Route: 048
     Dates: start: 20130225
  3. ACETYLSALICYLIC ACID [Suspect]
     Indication: HYPERTENSION
     Dosage: 75 MG, QD (TAKEN EACH MORNING)
     Route: 048
     Dates: start: 20130207, end: 20130306
  4. AMLODIPINE [Concomitant]
  5. TRIMETHOPRIM [Concomitant]
  6. SENNA [Concomitant]
  7. CO-AMOXICLAV [Concomitant]
  8. LEVOTHYROXINE [Concomitant]

REACTIONS (5)
  - Rectal haemorrhage [Recovering/Resolving]
  - Duodenal ulcer [Recovering/Resolving]
  - Polyp [Recovering/Resolving]
  - Blood thyroid stimulating hormone increased [Unknown]
  - Haemoglobin increased [Unknown]
